FAERS Safety Report 24046302 (Version 1)
Quarter: 2024Q3

REPORT INFORMATION
  Report Type: Spontaneous
  Country: CA (occurrence: CA)
  Receive Date: 20240703
  Receipt Date: 20240703
  Transmission Date: 20241017
  Serious: Yes (Hospitalization, Other)
  Sender: PFIZER
  Company Number: CA-PFIZER INC-202400205154

PATIENT
  Age: 82 Year
  Sex: Male

DRUGS (3)
  1. FRAGMIN [Suspect]
     Active Substance: DALTEPARIN SODIUM
     Indication: Deep vein thrombosis
     Dosage: UNK
     Route: 065
  2. ERLEADA [Suspect]
     Active Substance: APALUTAMIDE
     Indication: Hormone-dependent prostate cancer
     Dosage: 240 MG, 1X/DAY
     Route: 048
  3. GOSERELIN [Suspect]
     Active Substance: GOSERELIN
     Indication: Hormone-dependent prostate cancer
     Dosage: 10.8 MG
     Route: 058

REACTIONS (4)
  - Dyspnoea [Unknown]
  - Fall [Unknown]
  - Pulmonary thrombosis [Unknown]
  - Splenic rupture [Unknown]
